FAERS Safety Report 17750768 (Version 7)
Quarter: 2021Q1

REPORT INFORMATION
  Report Type: Spontaneous
  Country: US (occurrence: US)
  Receive Date: 20200506
  Receipt Date: 20210304
  Transmission Date: 20210419
  Serious: No
  Sender: FDA-Public Use
  Company Number: US-VERTEX PHARMACEUTICALS-2020-009816

PATIENT
  Sex: Female
  Weight: 67 kg

DRUGS (2)
  1. TRIKAFTA [Suspect]
     Active Substance: ELEXACAFTOR\IVACAFTOR\TEZACAFTOR
     Indication: CYSTIC FIBROSIS
     Dosage: 2 TAB (100 MG ELEXA/ 50 MG TEZA/ 75 MG IVA) AM; 1 TAB (150MG IVA) PM
     Route: 048
     Dates: start: 20200409
  2. AZTREONAM LYSINE [Suspect]
     Active Substance: AZTREONAM LYSINE
     Indication: CYSTIC FIBROSIS
     Dosage: 75MG, TID
     Dates: start: 20190505

REACTIONS (8)
  - Fatigue [Recovered/Resolved]
  - Blood sodium decreased [Recovering/Resolving]
  - Dry eye [Not Recovered/Not Resolved]
  - Blood potassium decreased [Recovering/Resolving]
  - Lacrimation increased [Not Recovered/Not Resolved]
  - Hordeolum [Unknown]
  - Malaise [Recovered/Resolved]
  - Rhinorrhoea [Not Recovered/Not Resolved]

NARRATIVE: CASE EVENT DATE: 2020
